FAERS Safety Report 6339897-7 (Version None)
Quarter: 2009Q3

REPORT INFORMATION
  Report Type: 
  Country: None (occurrence: None)
  Receive Date: 20090903
  Receipt Date: 20090831
  Transmission Date: 20100115
  Serious: Yes (Hospitalization, Other)
  Sender: FDA-Public Use
  Company Number: TR-ROXANE LABORATORIES, INC.-2009-RO-00883RO

PATIENT
  Age: 16 Year
  Sex: Male

DRUGS (12)
  1. RISPERIDONE [Suspect]
     Indication: SCHIZOPHRENIA
     Dosage: 2 MG
  2. RISPERIDONE [Suspect]
     Dosage: 5 MG
  3. SERTRALINE HCL [Suspect]
     Indication: SCHIZOPHRENIA
     Dosage: 50 MG
  4. SERTRALINE HCL [Suspect]
     Indication: OBSESSIVE THOUGHTS
     Dosage: 100 MG
  5. SERTRALINE HCL [Suspect]
     Indication: SOMNOLENCE
  6. OLANZAPINE [Suspect]
     Indication: SCHIZOPHRENIA
     Dosage: 20 MG
  7. OLANZAPINE [Suspect]
     Dosage: 30 MG
  8. CLOZAPINE [Suspect]
     Indication: SCHIZOPHRENIA
     Dosage: 150 MG
  9. CLOZAPINE [Suspect]
     Dosage: 200 MG
  10. CLOZAPINE [Suspect]
     Dosage: 250 MG
  11. CLOZAPINE [Suspect]
     Dosage: 325 MG
  12. BLEACH [Concomitant]
     Indication: SUICIDE ATTEMPT
     Route: 048

REACTIONS (4)
  - DRUG INEFFECTIVE [None]
  - OBSESSIVE THOUGHTS [None]
  - SOMNOLENCE [None]
  - WEIGHT INCREASED [None]
